FAERS Safety Report 5157674-X (Version None)
Quarter: 2006Q4

REPORT INFORMATION
  Report Type: 
  Country: None (occurrence: None)
  Receive Date: 20061127
  Receipt Date: 20061025
  Transmission Date: 20070319
  Serious: Yes (Death)
  Sender: FDA-Public Use
  Company Number: 2006AP05107

PATIENT
  Age: 55 Year
  Sex: Female
  Weight: 55 kg

DRUGS (6)
  1. PROPOFOL [Suspect]
     Indication: INDUCTION OF ANAESTHESIA
     Route: 042
  2. VECURONIUM BROMIDE [Concomitant]
     Indication: INDUCTION OF ANAESTHESIA
     Route: 042
  3. OXYGEN FOR MEDICAL USE [Concomitant]
     Indication: MAINTENANCE OF ANAESTHESIA
     Route: 055
  4. NITROUS OXIDE W/ OXYGEN [Concomitant]
     Indication: MAINTENANCE OF ANAESTHESIA
     Route: 055
  5. SEVOFLURANE [Concomitant]
     Indication: MAINTENANCE OF ANAESTHESIA
     Route: 055
  6. SODIUM NITROPRUSSIDE [Concomitant]
     Indication: HYPOTENSION
     Route: 042

REACTIONS (3)
  - ANGIONEUROTIC OEDEMA [None]
  - INTUBATION COMPLICATION [None]
  - TOXIC EPIDERMAL NECROLYSIS [None]
